FAERS Safety Report 10168002 (Version 2)
Quarter: 2014Q2

REPORT INFORMATION
  Report Type: Report from Study
  Country: US (occurrence: US)
  Receive Date: 20140512
  Receipt Date: 20140512
  Transmission Date: 20141212
  Serious: Yes (Hospitalization)
  Sender: FDA-Public Use
  Company Number: US-GLAXOSMITHKLINE-Z0005627A

PATIENT
  Age: 68 Year
  Sex: Male

DRUGS (2)
  1. DARAPLADIB [Suspect]
     Indication: ACUTE CORONARY SYNDROME
     Dosage: 160MG PER DAY
     Dates: start: 20100830
  2. COREG [Suspect]
     Indication: PRODUCT USED FOR UNKNOWN INDICATION
     Dosage: 25MG TWICE PER DAY
     Route: 048
     Dates: start: 20100903, end: 20100904

REACTIONS (1)
  - Syncope [Recovered/Resolved]
